FAERS Safety Report 9322894 (Version 2)
Quarter: 2013Q4

REPORT INFORMATION
  Report Type: Spontaneous
  Country: US (occurrence: US)
  Receive Date: 20130601
  Receipt Date: 20131211
  Transmission Date: 20140711
  Serious: Yes (Hospitalization, Disabling, Other)
  Sender: FDA-Public Use
  Company Number: US-ASTRAZENECA-2013SE38624

PATIENT
  Age: 44 Year
  Sex: Female
  Weight: 81.6 kg

DRUGS (17)
  1. NEXIUM [Suspect]
     Indication: GASTROOESOPHAGEAL REFLUX DISEASE
     Route: 048
     Dates: start: 2002, end: 2009
  2. NEXIUM [Suspect]
     Indication: GASTROOESOPHAGEAL REFLUX DISEASE
     Route: 048
     Dates: start: 20050112
  3. PRILOSEC [Suspect]
     Indication: GASTROOESOPHAGEAL REFLUX DISEASE
     Route: 048
     Dates: start: 2010
  4. TRAMADOL [Concomitant]
     Indication: PAIN
  5. TIZANIDINE [Concomitant]
     Indication: MUSCLE RELAXANT THERAPY
  6. MAXALT [Concomitant]
     Indication: MIGRAINE
  7. LORAZEPAM [Concomitant]
  8. PROAIR [Concomitant]
     Indication: ASTHMA
  9. POTASSIUM [Concomitant]
  10. ESTRADOL [Concomitant]
     Indication: MENOPAUSE
  11. ESTROGEN [Concomitant]
  12. PAXIL [Concomitant]
  13. THYROLAR [Concomitant]
     Dates: start: 20050102
  14. IBUPROFEN [Concomitant]
     Dates: start: 20060227
  15. ETODOLAC [Concomitant]
     Dates: start: 20060227
  16. NAPROXEN [Concomitant]
     Dates: start: 20060227
  17. LEVAQUIN [Concomitant]
     Dates: start: 20061115

REACTIONS (17)
  - Gait disturbance [Unknown]
  - Lower limb fracture [Unknown]
  - Tibia fracture [Unknown]
  - Fibula fracture [Unknown]
  - Joint dislocation [Unknown]
  - Osteomyelitis [Unknown]
  - Meniscus injury [Unknown]
  - Fall [Unknown]
  - Upper limb fracture [Unknown]
  - Osteoporosis [Unknown]
  - Bone disorder [Unknown]
  - Arthritis [Unknown]
  - Calcium deficiency [Unknown]
  - Vitamin D deficiency [Unknown]
  - Anxiety [Unknown]
  - Radial head dislocation [Unknown]
  - Depression [Unknown]
